FAERS Safety Report 23246595 (Version 2)
Quarter: 2023Q4

REPORT INFORMATION
  Report Type: Spontaneous
  Country: HR (occurrence: HR)
  Receive Date: 20231130
  Receipt Date: 20231207
  Transmission Date: 20240110
  Serious: Yes (Other)
  Sender: FDA-Public Use
  Company Number: HR-002147023-NVSC2023HR251731

PATIENT
  Sex: Female

DRUGS (5)
  1. TASIGNA [Suspect]
     Active Substance: NILOTINIB
     Indication: Chronic myeloid leukaemia
     Dosage: 400 MG, BID (2X)
     Route: 065
     Dates: start: 2019, end: 2019
  2. TASIGNA [Suspect]
     Active Substance: NILOTINIB
     Dosage: 200 MG, QD (DAILY)
     Route: 065
     Dates: start: 2019, end: 201910
  3. TASIGNA [Suspect]
     Active Substance: NILOTINIB
     Dosage: UNK (400MG +200 MG)
     Route: 065
     Dates: start: 201910, end: 202008
  4. TASIGNA [Suspect]
     Active Substance: NILOTINIB
     Dosage: 200 MG, QD (DAILY)
     Route: 065
     Dates: start: 202008, end: 202010
  5. TASIGNA [Suspect]
     Active Substance: NILOTINIB
     Dosage: 200 MG, BID (2X)
     Route: 065
     Dates: start: 202010, end: 202201

REACTIONS (3)
  - Cerebral ischaemia [Unknown]
  - Pancytopenia [Recovering/Resolving]
  - Muscular weakness [Unknown]

NARRATIVE: CASE EVENT DATE: 20200101
